FAERS Safety Report 7823822-3 (Version None)
Quarter: 2011Q4

REPORT INFORMATION
  Report Type: 
  Country: None (occurrence: None)
  Receive Date: 20111019
  Receipt Date: 20111007
  Transmission Date: 20120403
  Serious: Yes (Hospitalization)
  Sender: FDA-Public Use
  Company Number: DE-JNJFOC-20110710663

PATIENT
  Sex: Female
  Weight: 39.8 kg

DRUGS (2)
  1. INFLIXIMAB, RECOMBINANT [Suspect]
     Indication: CROHN'S DISEASE
     Route: 042
     Dates: start: 20100301
  2. CEFUROXIME [Suspect]
     Indication: ILL-DEFINED DISORDER

REACTIONS (2)
  - SUBCUTANEOUS ABSCESS [None]
  - BACTERIAL INFECTION [None]
